FAERS Safety Report 24253085 (Version 1)
Quarter: 2024Q3

REPORT INFORMATION
  Report Type: Spontaneous
  Country: GB (occurrence: GB)
  Receive Date: 20240827
  Receipt Date: 20240827
  Transmission Date: 20241017
  Serious: Yes (Death, Hospitalization)
  Sender: MACLEODS
  Company Number: GB-MLMSERVICE-20240807-PI154535-00270-1

PATIENT

DRUGS (6)
  1. CLOBETASOL [Suspect]
     Active Substance: CLOBETASOL
     Indication: Pemphigoid
     Route: 065
  2. PREDNISOLONE [Suspect]
     Active Substance: PREDNISOLONE
     Indication: Pemphigoid
     Dosage: GRADUALLY WEANED DOWN
     Route: 048
  3. PREDNISOLONE [Suspect]
     Active Substance: PREDNISOLONE
     Dosage: 1 DAY
     Route: 048
  4. PREDNISOLONE [Suspect]
     Active Substance: PREDNISOLONE
     Dosage: 1 DAY
     Route: 048
  5. DAPSONE [Suspect]
     Active Substance: DAPSONE
     Indication: Pemphigoid
     Dosage: 1 DAY
     Route: 048
  6. DOXYCYCLINE [Concomitant]
     Active Substance: DOXYCYCLINE\DOXYCYCLINE HYCLATE
     Indication: Pemphigoid
     Dosage: DUE TO RENAL FUNCTION, 1 DAY
     Route: 065

REACTIONS (4)
  - Methaemoglobinaemia [Unknown]
  - Delirium [Unknown]
  - Renal impairment [Unknown]
  - Death [Fatal]
